FAERS Safety Report 7859532-6 (Version None)
Quarter: 2011Q4

REPORT INFORMATION
  Report Type: 
  Country: None (occurrence: None)
  Receive Date: 20111020
  Receipt Date: 20111014
  Transmission Date: 20120403
  Serious: Yes (Other)
  Sender: FDA-Public Use
  Company Number: 2011030013

PATIENT
  Sex: Male
  Weight: 104.3273 kg

DRUGS (7)
  1. MULTIVITAMIN (DAILY MULTIVITAMIN) [Concomitant]
  2. ZEMAIRA [Suspect]
     Indication: EMPHYSEMA
     Dosage: 60 MG/KG 1X/WEEK, AT MAX RATE OF 8.3 ML PER MIN INTRAVENOUS (NOT OTHERWISE SPECIFIED)
     Route: 042
     Dates: start: 20110912
  3. ZEMAIRA [Suspect]
     Indication: ALPHA-1 ANTI-TRYPSIN DEFICIENCY
     Dosage: 60 MG/KG 1X/WEEK, AT MAX RATE OF 8.3 ML PER MIN INTRAVENOUS (NOT OTHERWISE SPECIFIED)
     Route: 042
     Dates: start: 20110912
  4. PROVENTIL HFA (SALBUTAMOL) [Concomitant]
  5. COMBIVENT [Concomitant]
  6. LOSARTAN POTASSIUM [Concomitant]
  7. METOPROLOL SUCCINATE [Concomitant]

REACTIONS (5)
  - FEELING ABNORMAL [None]
  - RASH [None]
  - NASAL CONGESTION [None]
  - DYSPNOEA [None]
  - INFUSION RELATED REACTION [None]
